FAERS Safety Report 7141872-X (Version None)
Quarter: 2010Q4

REPORT INFORMATION
  Report Type: 
  Country: None (occurrence: None)
  Receive Date: 20101207
  Receipt Date: 20101201
  Transmission Date: 20110411
  Serious: Yes (Life-Threatening)
  Sender: FDA-Public Use
  Company Number: IT-ROCHE-745778

PATIENT
  Sex: Female

DRUGS (8)
  1. ROCEPHIN [Suspect]
     Dosage: DOSE: 1 GR, FREQUENCY: TOTAL
     Route: 030
     Dates: start: 20101129, end: 20101129
  2. GLIMEPIRIDE [Concomitant]
  3. COUMADIN [Concomitant]
  4. LASIX [Concomitant]
  5. LANOXIN [Concomitant]
  6. POTASSIUM CANRENOATE [Concomitant]
  7. TOTALIP [Concomitant]
  8. SERETIDE [Concomitant]

REACTIONS (6)
  - AUTONOMIC NEUROPATHY [None]
  - DYSPNOEA [None]
  - HYPERHIDROSIS [None]
  - HYPOTENSION [None]
  - NAUSEA [None]
  - PARAESTHESIA [None]
